FAERS Safety Report 24995177 (Version 2)
Quarter: 2025Q3

REPORT INFORMATION
  Report Type: Report from Study
  Country: US (occurrence: US)
  Receive Date: 20250221
  Receipt Date: 20250809
  Transmission Date: 20251021
  Serious: Yes (Hospitalization)
  Sender: ALEXION PHARMACEUTICALS
  Company Number: US-ASTRAZENECA-202502USA014091US

PATIENT
  Sex: Male
  Weight: 75.737 kg

DRUGS (7)
  1. SOLIRIS [Suspect]
     Active Substance: ECULIZUMAB
     Indication: Colitis ulcerative
     Dosage: 1200 MILLIGRAM, Q2W
     Dates: start: 20250214
  2. PREDNISONE [Concomitant]
     Active Substance: PREDNISONE
     Route: 065
  3. HYDRALAZINE HCL [Concomitant]
     Active Substance: HYDRALAZINE HYDROCHLORIDE
     Route: 065
  4. NIFEDIPINE [Concomitant]
     Active Substance: NIFEDIPINE
     Route: 065
  5. CARVEDILOL [Concomitant]
     Active Substance: CARVEDILOL
     Route: 065
  6. GABAPENTIN [Concomitant]
     Active Substance: GABAPENTIN
     Route: 065
  7. INFLECTRA [Concomitant]
     Active Substance: INFLIXIMAB-DYYB
     Route: 065

REACTIONS (1)
  - Illness [Unknown]
